FAERS Safety Report 12248600 (Version 1)
Quarter: 2016Q2

REPORT INFORMATION
  Report Type: Spontaneous
  Country: US (occurrence: US)
  Receive Date: 20160408
  Receipt Date: 20160408
  Transmission Date: 20160815
  Serious: No
  Sender: FDA-Public Use
  Company Number: US-PFIZER INC-2016159423

PATIENT
  Age: 28 Year
  Sex: Male
  Weight: 59 kg

DRUGS (1)
  1. VIAGRA [Suspect]
     Active Substance: SILDENAFIL CITRATE
     Indication: PARAPLEGIA
     Dosage: 100 MG, AS NEEDED
     Route: 048

REACTIONS (4)
  - Product use issue [Unknown]
  - Vision blurred [Recovered/Resolved]
  - Flushing [Recovered/Resolved]
  - Headache [Recovered/Resolved]
